FAERS Safety Report 4976483-5 (Version None)
Quarter: 2006Q2

REPORT INFORMATION
  Report Type: 
  Country: None (occurrence: None)
  Receive Date: 20060412
  Receipt Date: 20060329
  Transmission Date: 20061013
  Serious: Yes (Hospitalization, Other)
  Sender: FDA-Public Use
  Company Number: FR9213721OCT2002

PATIENT
  Age: 33 Year
  Sex: Female

DRUGS (2)
  1. LEVONORGESTREL AND ETHINYL ESTRADIOL [Suspect]
     Indication: ORAL CONTRACEPTION
     Dosage: 1 TABLET 1X PER 1 DAY
     Route: 048
     Dates: start: 19920101, end: 20020807
  2. YASMIN [Suspect]
     Indication: ORAL CONTRACEPTION
     Dosage: 1 DOSE 1X PER 1 DAY
     Route: 048
     Dates: start: 20020808, end: 20020817

REACTIONS (13)
  - ACUTE CORONARY SYNDROME [None]
  - ANTINUCLEAR ANTIBODY POSITIVE [None]
  - ARTERIAL SPASM [None]
  - ARTERIOSCLEROSIS CORONARY ARTERY [None]
  - CORONARY ARTERY STENOSIS [None]
  - DRUG INEFFECTIVE [None]
  - ECTOPIC PREGNANCY [None]
  - MYOCARDIAL INFARCTION [None]
  - POST PROCEDURAL COMPLICATION [None]
  - PREGNANCY ON ORAL CONTRACEPTIVE [None]
  - PROTEIN S DECREASED [None]
  - THROMBOSIS [None]
  - UNINTENDED PREGNANCY [None]
